FAERS Safety Report 6593123-2 (Version None)
Quarter: 2010Q1

REPORT INFORMATION
  Report Type: 
  Country: None (occurrence: None)
  Receive Date: 20100222
  Receipt Date: 20100209
  Transmission Date: 20100710
  Serious: Yes (Other)
  Sender: FDA-Public Use
  Company Number: PHHY2010JP07845

PATIENT
  Age: 80 Year
  Sex: Male

DRUGS (10)
  1. VOLTAREN [Suspect]
     Indication: PYREXIA
     Dosage: 25 MG, UNK
     Route: 054
     Dates: start: 20091109, end: 20091109
  2. VOLTAREN [Suspect]
     Dosage: 25 MG, UNK
     Route: 054
     Dates: start: 20091225, end: 20091225
  3. ELNEOPA [Concomitant]
     Dosage: 15000 ML, UNK
     Route: 042
  4. HUMULIN R [Concomitant]
     Dosage: 35 DF, UNK
     Route: 042
  5. ISOTONIC SOLUTIONS [Concomitant]
     Dosage: 20 ML, UNK
     Route: 042
  6. ASPARA K [Concomitant]
     Dosage: 300 MG, UNK
     Route: 048
  7. NU-LOTAN [Concomitant]
     Dosage: 50 MG, UNK
     Route: 048
  8. ARICEPT [Concomitant]
     Dosage: 5 MG, UNK
     Route: 048
  9. DEPAS [Concomitant]
     Dosage: 0.5 MG, UNK
     Route: 048
  10. PROMAC [Concomitant]
     Dosage: 75 MG, UNK
     Route: 048

REACTIONS (2)
  - BLOOD PRESSURE DECREASED [None]
  - HYPOTHERMIA [None]
